FAERS Safety Report 9110260 (Version 1)
Quarter: 2013Q1

REPORT INFORMATION
  Report Type: Spontaneous
  Country: PT (occurrence: PT)
  Receive Date: 20130222
  Receipt Date: 20130222
  Transmission Date: 20140127
  Serious: Yes (Hospitalization)
  Sender: FDA-Public Use
  Company Number: PT-PERRIGO-13PT001781

PATIENT
  Age: 8 Year
  Sex: Male

DRUGS (6)
  1. INDOMETHACIN [Suspect]
     Indication: BARTTER^S SYNDROME
     Dosage: UNK
     Route: 048
     Dates: start: 2001, end: 200905
  2. INDOMETHACIN [Suspect]
     Dosage: 1.5 MG/KG, QD
     Route: 048
     Dates: start: 200907
  3. INDOMETHACIN [Suspect]
     Dosage: 0.7 MG/KG, QD
     Route: 048
     Dates: start: 201007
  4. KCL [Suspect]
     Indication: BARTTER^S SYNDROME
     Dosage: UP TO 12 MEQ/KG/DA
     Route: 048
     Dates: start: 2001, end: 200905
  5. KCL [Suspect]
     Dosage: UNK
     Route: 048
  6. OMEPRAZOLE [Concomitant]
     Indication: OESOPHAGITIS
     Dosage: UNK
     Route: 065
     Dates: start: 2007

REACTIONS (3)
  - Gastric ulcer [Recovered/Resolved]
  - Hypokalaemia [Recovered/Resolved]
  - Off label use [Unknown]
